FAERS Safety Report 5460698-6 (Version None)
Quarter: 2007Q3

REPORT INFORMATION
  Report Type: 
  Country: None (occurrence: None)
  Receive Date: 20070918
  Receipt Date: 20070903
  Transmission Date: 20080115
  Serious: Yes (Hospitalization, Other)
  Sender: FDA-Public Use
  Company Number: 060005L07JPN

PATIENT
  Age: 33 Week
  Sex: Female

DRUGS (2)
  1. FERTINORM P(MENOTROPHIN) [Suspect]
     Indication: IN VITRO FERTILISATION
     Dosage: IVF
     Route: 042
  2. CLOMID [Suspect]
     Indication: IN VITRO FERTILISATION
     Dosage: IVF
     Route: 042

REACTIONS (6)
  - CAESAREAN SECTION [None]
  - DRUG EXPOSURE DURING PREGNANCY [None]
  - KARYOTYPE ANALYSIS ABNORMAL [None]
  - PLACENTAL TRANSFUSION SYNDROME [None]
  - PREMATURE BABY [None]
  - TWIN PREGNANCY [None]
